FAERS Safety Report 6286991-5 (Version None)
Quarter: 2009Q3

REPORT INFORMATION
  Report Type: 
  Country: None (occurrence: None)
  Receive Date: 20090728
  Receipt Date: 20090724
  Transmission Date: 20100115
  Serious: Yes (Death)
  Sender: FDA-Public Use
  Company Number: JP-SANOFI-SYNTHELABO-A01200907453

PATIENT
  Age: 62 Year
  Sex: Male

DRUGS (4)
  1. AVASTIN [Concomitant]
     Route: 042
     Dates: start: 20090608, end: 20090608
  2. ISOVORIN [Concomitant]
     Route: 042
     Dates: start: 20090608, end: 20090609
  3. FLUOROURACIL [Concomitant]
     Route: 042
     Dates: start: 20090608, end: 20090609
  4. ELPLAT [Suspect]
     Dosage: 130 MG
     Route: 041
     Dates: start: 20090608, end: 20090608

REACTIONS (5)
  - ALTERED STATE OF CONSCIOUSNESS [None]
  - DISSEMINATED INTRAVASCULAR COAGULATION [None]
  - MULTI-ORGAN FAILURE [None]
  - RENAL FAILURE [None]
  - RESPIRATORY FAILURE [None]
